FAERS Safety Report 6187896-0 (Version None)
Quarter: 2009Q2

REPORT INFORMATION
  Report Type: 
  Country: None (occurrence: None)
  Receive Date: 20090511
  Receipt Date: 20090511
  Transmission Date: 20091009
  Serious: Yes (Other)
  Sender: FDA-Public Use
  Company Number: None

PATIENT
  Age: 70 Year
  Sex: Male
  Weight: 84 kg

DRUGS (1)
  1. VASOPRESSIN INJECTION 20 UNITS/1ML AMERICAN REGENT INC. NDC 0517-1020- [Suspect]
     Indication: HYPOVOLAEMIC SHOCK
     Dates: start: 20090422

REACTIONS (1)
  - DRUG EFFECT DECREASED [None]
